FAERS Safety Report 5088095-6 (Version None)
Quarter: 2006Q3

REPORT INFORMATION
  Report Type: 
  Country: None (occurrence: None)
  Receive Date: 20060727
  Receipt Date: 20060512
  Transmission Date: 20061208
  Serious: Yes (Other)
  Sender: FDA-Public Use
  Company Number: 2006031572

PATIENT
  Age: 66 Year
  Sex: Female

DRUGS (6)
  1. LYRICA [Suspect]
     Indication: MULTIPLE SCLEROSIS
     Dosage: 300 MG (150 MG, 2 IN 1 D), ORAL
     Route: 048
     Dates: start: 20051223, end: 20060226
  2. ZOLOFT [Concomitant]
  3. ALL OTHER THERAPEUTIC PRODUCTS (ALL OTHER THERAPEUTIC PRODUCTS) [Concomitant]
  4. DURAGESIC-100 [Concomitant]
  5. LIPITOR [Concomitant]
  6. METHYLPHENIDATE HCL [Concomitant]

REACTIONS (4)
  - COLONOSCOPY [None]
  - MALAISE [None]
  - OVERDOSE [None]
  - THERAPEUTIC PROCEDURE [None]
